FAERS Safety Report 16565937 (Version 3)
Quarter: 2019Q3

REPORT INFORMATION
  Report Type: Report from Study
  Country: CO (occurrence: CO)
  Receive Date: 20190712
  Receipt Date: 20190816
  Transmission Date: 20191004
  Serious: Yes (Hospitalization, Other)
  Sender: FDA-Public Use
  Company Number: CO-ASTELLAS-2019US028398

PATIENT
  Age: 5 Year
  Sex: Male
  Weight: 19 kg

DRUGS (7)
  1. TACROLIMUS. [Suspect]
     Active Substance: TACROLIMUS
     Dosage: 2.5 MG, ONCE DAILY (2 CAPSULES OF 1MG AND 1 CAPSULE OF 0.5MG)
     Route: 048
     Dates: start: 20190702
  2. TACROLIMUS. [Suspect]
     Active Substance: TACROLIMUS
     Indication: RENAL TRANSPLANT
     Dosage: 2 MG, ONCE DAILY (2 CAPSULES OF 1MG)
     Route: 048
     Dates: start: 20160429, end: 20190701
  3. MYCOPHENOLATE [Concomitant]
     Active Substance: MYCOPHENOLIC ACID
     Indication: IMMUNOSUPPRESSION
     Route: 048
     Dates: start: 20190703
  4. BECLOMETASONE [Concomitant]
     Active Substance: BECLOMETHASONE DIPROPIONATE
     Indication: ADENOIDITIS
     Dosage: 1 NASAL PUFF, UNKNOWN FREQ.
     Route: 045
     Dates: start: 201812
  5. MYCOPHENOLATE [Concomitant]
     Active Substance: MYCOPHENOLIC ACID
     Indication: RENAL TRANSPLANT
     Dosage: 360 MG IN THE MORNING AND 180MG IN THE NIGHT( TWICE DAILY)
     Route: 048
     Dates: start: 20160429, end: 20190702
  6. PREDNISOLONE. [Concomitant]
     Active Substance: PREDNISOLONE
     Indication: RENAL TRANSPLANT
     Dosage: 2.5 MG, UNKNOWN FREQ. (2.5MG ON MONDAY, WEDNESDAY AND FRIDAY)
     Route: 048
     Dates: start: 20160429
  7. TACROLIMUS. [Suspect]
     Active Substance: TACROLIMUS
     Route: 048
     Dates: start: 20190719

REACTIONS (7)
  - Cough [Recovering/Resolving]
  - Infection parasitic [Recovering/Resolving]
  - Pyrexia [Recovering/Resolving]
  - Adenovirus infection [Recovering/Resolving]
  - Pulmonary mycosis [Recovering/Resolving]
  - Pulmonary mass [Not Recovered/Not Resolved]
  - Kidney transplant rejection [Recovering/Resolving]

NARRATIVE: CASE EVENT DATE: 20190620
